FAERS Safety Report 26090488 (Version 1)
Quarter: 2025Q4

REPORT INFORMATION
  Report Type: Report from Study
  Country: MX (occurrence: MX)
  Receive Date: 20251126
  Receipt Date: 20251126
  Transmission Date: 20260118
  Serious: Yes (Hospitalization, Other)
  Sender: EMD SERONO INC
  Company Number: MX-Merck Healthcare KGaA-2025059446

PATIENT
  Age: 73 Year
  Sex: Male

DRUGS (1)
  1. REBIF [Suspect]
     Active Substance: INTERFERON BETA-1A
     Indication: Multiple sclerosis
     Dates: start: 20141201

REACTIONS (5)
  - Diabetes mellitus [Not Recovered/Not Resolved]
  - Cerebrovascular accident [Recovering/Resolving]
  - Dry eye [Recovered/Resolved]
  - Multiple sclerosis relapse [Recovering/Resolving]
  - Hypertension [Not Recovered/Not Resolved]

NARRATIVE: CASE EVENT DATE: 20250909
